FAERS Safety Report 4664293-8 (Version None)
Quarter: 2005Q2

REPORT INFORMATION
  Report Type: 
  Country: None (occurrence: None)
  Receive Date: 20050518
  Receipt Date: 20050225
  Transmission Date: 20051028
  Serious: Yes (Death, Hospitalization)
  Sender: FDA-Public Use
  Company Number: US-MERCK-0503USA00090

PATIENT
  Age: 83 Year
  Sex: Female
  Weight: 63 kg

DRUGS (6)
  1. VIOXX [Suspect]
     Indication: ARTHRITIS
     Route: 048
     Dates: start: 20000701, end: 20030301
  2. ZOCOR [Concomitant]
     Route: 065
     Dates: start: 20030124, end: 20030302
  3. TOPROL-XL [Concomitant]
     Route: 065
     Dates: start: 20021011, end: 20030302
  4. ADALAT [Concomitant]
     Route: 065
     Dates: end: 20030301
  5. EDETATE SODIUM AND GINKGO BILOBA EXTRACT [Concomitant]
     Route: 065
  6. LASIX [Concomitant]
     Route: 065

REACTIONS (17)
  - ANXIETY [None]
  - ARTERIOSCLEROSIS [None]
  - ATHEROSCLEROSIS [None]
  - BLOOD CHOLESTEROL INCREASED [None]
  - BLOOD TRIGLYCERIDES INCREASED [None]
  - CATARACT [None]
  - CHRONIC OBSTRUCTIVE PULMONARY DISEASE [None]
  - CORONARY ARTERY ATHEROSCLEROSIS [None]
  - DYSPEPSIA [None]
  - DYSPNOEA [None]
  - HYPERTENSION [None]
  - MYOCARDIAL INFARCTION [None]
  - OEDEMA PERIPHERAL [None]
  - OSTEOARTHRITIS [None]
  - SKIN CANCER [None]
  - THYROID DISORDER [None]
  - ULCER [None]
